FAERS Safety Report 20308892 (Version 1)
Quarter: 2022Q1

REPORT INFORMATION
  Report Type: Spontaneous
  Country: US (occurrence: None)
  Receive Date: 20220106
  Receipt Date: 20220106
  Transmission Date: 20220423
  Serious: No
  Sender: FDA-Public Use
  Company Number: None

PATIENT
  Age: 26 Year
  Sex: Male
  Weight: 67.95 kg

DRUGS (2)
  1. DEXMETHYLPHENIDATE [Suspect]
     Active Substance: DEXMETHYLPHENIDATE
     Indication: Attention deficit hyperactivity disorder
     Dosage: FREQUENCY : TWICE A DAY;?
     Route: 048
     Dates: start: 20211228, end: 20220106
  2. DEXMETHYLPHENIDATE [Suspect]
     Active Substance: DEXMETHYLPHENIDATE
     Indication: Sleep apnoea syndrome

REACTIONS (8)
  - Product substitution issue [None]
  - Drug effect less than expected [None]
  - Depressed level of consciousness [None]
  - Lethargy [None]
  - Headache [None]
  - Anxiety [None]
  - Irritability [None]
  - Pruritus [None]

NARRATIVE: CASE EVENT DATE: 20211228
